FAERS Safety Report 21947394 (Version 1)
Quarter: 2023Q1

REPORT INFORMATION
  Report Type: Spontaneous
  Country: US (occurrence: US)
  Receive Date: 20230202
  Receipt Date: 20230202
  Transmission Date: 20230418
  Serious: No
  Sender: FDA-Public Use
  Company Number: US-BAUSCHBL-2023BNL000792

PATIENT
  Sex: Male

DRUGS (1)
  1. LEVOBUNOLOL HYDROCHLORIDE [Suspect]
     Active Substance: LEVOBUNOLOL HYDROCHLORIDE
     Indication: Product used for unknown indication
     Route: 065
     Dates: start: 20230127

REACTIONS (2)
  - Instillation site irritation [Unknown]
  - Instillation site discomfort [Unknown]

NARRATIVE: CASE EVENT DATE: 20230127
